FAERS Safety Report 12658028 (Version 1)
Quarter: 2016Q3

REPORT INFORMATION
  Report Type: Report from Study
  Country: FR (occurrence: FR)
  Receive Date: 20160816
  Receipt Date: 20160816
  Transmission Date: 20161109
  Serious: Yes (Hospitalization)
  Sender: FDA-Public Use
  Company Number: FR-CELGENEUS-FRA-2016021074

PATIENT
  Age: 65 Year
  Sex: Male
  Weight: 86 kg

DRUGS (10)
  1. ZELITREX [Concomitant]
     Active Substance: VALACYCLOVIR HYDROCHLORIDE
     Indication: INFECTION PROPHYLAXIS
     Route: 048
     Dates: start: 20150408
  2. BACTRIM [Concomitant]
     Active Substance: SULFAMETHOXAZOLE\TRIMETHOPRIM
     Indication: INFECTION PROPHYLAXIS
     Route: 048
     Dates: start: 20150408
  3. TAVOR (LORAZEPAM) [Concomitant]
     Active Substance: LORAZEPAM
     Indication: PRODUCT USED FOR UNKNOWN INDICATION
     Route: 048
     Dates: start: 2013
  4. DEXAMETHASONE. [Suspect]
     Active Substance: DEXAMETHASONE
     Indication: PLASMA CELL MYELOMA
     Route: 048
     Dates: start: 20150908, end: 20160126
  5. KARDEGIC [Concomitant]
     Active Substance: ASPIRIN LYSINE
     Indication: THROMBOSIS PROPHYLAXIS
     Route: 048
     Dates: start: 20150408
  6. AMOXICILLIN. [Concomitant]
     Active Substance: AMOXICILLIN
     Indication: INFECTION PROPHYLAXIS
     Route: 048
     Dates: start: 20150408
  7. POMALIDOMIDE [Suspect]
     Active Substance: POMALIDOMIDE
     Indication: PLASMA CELL MYELOMA
     Route: 048
     Dates: start: 20150908, end: 20160125
  8. CYCLOPHOSPHAMIDE. [Suspect]
     Active Substance: CYCLOPHOSPHAMIDE
     Indication: PLASMA CELL MYELOMA
     Route: 048
     Dates: start: 20150908, end: 20160126
  9. LEDERFOLIN [Concomitant]
     Active Substance: LEUCOVORIN CALCIUM
     Indication: INFECTION PROPHYLAXIS
     Route: 048
     Dates: start: 20150408
  10. WYSTAMM [Concomitant]
     Active Substance: RUPATADINE FUMARATE
     Indication: ALLERGY PROPHYLAXIS
     Route: 048
     Dates: start: 2013

REACTIONS (2)
  - Deep vein thrombosis [Recovered/Resolved]
  - Thrombophlebitis superficial [Recovered/Resolved]

NARRATIVE: CASE EVENT DATE: 20160129
